FAERS Safety Report 21234943 (Version 1)
Quarter: 2022Q3

REPORT INFORMATION
  Report Type: Spontaneous
  Country: US (occurrence: US)
  Receive Date: 20220821
  Receipt Date: 20220821
  Transmission Date: 20221027
  Serious: Yes (Death, Life-Threatening, Hospitalization, Other)
  Sender: FDA-Public Use
  Company Number: US-GlaxoSmithKline-A1071276A

PATIENT
  Age: 57 Year
  Sex: Male
  Weight: 64.5 kg

DRUGS (3)
  1. ARZERRA [Suspect]
     Active Substance: OFATUMUMAB
     Indication: Chronic lymphocytic leukaemia
     Dosage: 2000. ^C1: WEEKS 1-8, C2: WEEKS 4,8,12^.
     Route: 042
     Dates: start: 20130822, end: 20131205
  2. IBRUTINIB [Concomitant]
     Active Substance: IBRUTINIB
     Indication: Chronic lymphocytic leukaemia
     Route: 048
     Dates: start: 20131223, end: 20140121
  3. ALEMTUZUMAB [Concomitant]
     Active Substance: ALEMTUZUMAB

REACTIONS (9)
  - Death [Fatal]
  - Bronchopulmonary aspergillosis [Unknown]
  - Hypoxia [Unknown]
  - Cough [Unknown]
  - General physical health deterioration [Unknown]
  - Supportive care [Unknown]
  - Aspergillus infection [Unknown]
  - Lung infiltration [Unknown]
  - Hypoxia [Unknown]

NARRATIVE: CASE EVENT DATE: 20131201
